FAERS Safety Report 13206921 (Version 1)
Quarter: 2017Q1

REPORT INFORMATION
  Report Type: Spontaneous
  Country: US (occurrence: US)
  Receive Date: 20170208
  Receipt Date: 20170208
  Transmission Date: 20170428
  Serious: Yes (Hospitalization)
  Sender: FDA-Public Use
  Company Number: None

PATIENT
  Age: 83 Year
  Sex: Male

DRUGS (11)
  1. AMLODIPINE [Concomitant]
     Active Substance: AMLODIPINE BESYLATE
  2. PREDNISONE. [Concomitant]
     Active Substance: PREDNISONE
  3. METOPROLOL. [Concomitant]
     Active Substance: METOPROLOL
  4. LOSARTAN. [Concomitant]
     Active Substance: LOSARTAN
  5. LYRICA [Concomitant]
     Active Substance: PREGABALIN
  6. TYLENOL [Concomitant]
     Active Substance: ACETAMINOPHEN
  7. EXJADE [Suspect]
     Active Substance: DEFERASIROX
     Dosage: TWO 500MG TABLETS DAILY ORALLY
     Route: 048
     Dates: start: 20160503
  8. NAPROXEN. [Concomitant]
     Active Substance: NAPROXEN
  9. OXYCODONE [Concomitant]
     Active Substance: OXYCODONE
  10. CARBAMAZEPINE. [Concomitant]
     Active Substance: CARBAMAZEPINE
  11. HYDROCHLOROTHIAZIDE. [Concomitant]
     Active Substance: HYDROCHLOROTHIAZIDE

REACTIONS (1)
  - Hospitalisation [None]
